FAERS Safety Report 6860021-6 (Version None)
Quarter: 2010Q3

REPORT INFORMATION
  Report Type: 
  Country: None (occurrence: None)
  Receive Date: 20100720
  Receipt Date: 20100708
  Transmission Date: 20110219
  Serious: Yes (Disabling)
  Sender: FDA-Public Use
  Company Number: GB-PFIZER INC-2010085654

PATIENT
  Age: 70 Year
  Sex: Female

DRUGS (2)
  1. VARENICLINE TARTRATE [Suspect]
     Indication: SMOKING CESSATION THERAPY
     Dosage: UNK
     Route: 048
     Dates: start: 20100111, end: 20100222
  2. SERTRALINE [Concomitant]

REACTIONS (6)
  - ANXIETY [None]
  - DECREASED APPETITE [None]
  - DISTURBANCE IN ATTENTION [None]
  - INSOMNIA [None]
  - OBSESSIVE THOUGHTS [None]
  - SUICIDAL IDEATION [None]
